FAERS Safety Report 7701293-5 (Version None)
Quarter: 2011Q3

REPORT INFORMATION
  Report Type: 
  Country: None (occurrence: None)
  Receive Date: 20110819
  Receipt Date: 20110819
  Transmission Date: 20111222
  Serious: Yes (Life-Threatening, Hospitalization, Other)
  Sender: FDA-Public Use
  Company Number: None

PATIENT
  Age: 81 Year
  Sex: Female

DRUGS (1)
  1. WARFARIN SODIUM [Suspect]
     Dosage: 5 MG DAILY X 7.5 MG
     Dates: end: 20110519

REACTIONS (3)
  - FALL [None]
  - MUSCLE RUPTURE [None]
  - MUSCLE HAEMORRHAGE [None]
